FAERS Safety Report 5848219-7 (Version None)
Quarter: 2008Q3

REPORT INFORMATION
  Report Type: 
  Country: None (occurrence: None)
  Receive Date: 20080818
  Receipt Date: 20080811
  Transmission Date: 20090109
  Serious: Yes (Disabling)
  Sender: FDA-Public Use
  Company Number: B0533380A

PATIENT
  Sex: Male

DRUGS (2)
  1. SERETIDE [Suspect]
     Indication: DRUG USE FOR UNKNOWN INDICATION
     Route: 055
  2. SPIRIVA [Concomitant]
     Route: 055

REACTIONS (7)
  - DIARRHOEA [None]
  - INCREASED BRONCHIAL SECRETION [None]
  - NAUSEA [None]
  - STOMACH DISCOMFORT [None]
  - THIRST [None]
  - TRANSIENT ISCHAEMIC ATTACK [None]
  - WEIGHT DECREASED [None]
